FAERS Safety Report 7288733-3 (Version None)
Quarter: 2011Q1

REPORT INFORMATION
  Report Type: 
  Country: None (occurrence: None)
  Receive Date: 20110201
  Receipt Date: 20110119
  Transmission Date: 20110831
  Serious: Yes (Hospitalization)
  Sender: FDA-Public Use
  Company Number: 2011MA000716

PATIENT
  Sex: Male

DRUGS (4)
  1. CON MEDS [Concomitant]
  2. PREV MEDS [Concomitant]
  3. FEVERALL [Suspect]
     Indication: PRODUCT USED FOR UNKNOWN INDICATION
  4. CIPROFLOXACIN [Suspect]
     Indication: PRODUCT USED FOR UNKNOWN INDICATION

REACTIONS (2)
  - PYREXIA [None]
  - URTICARIA [None]
